FAERS Safety Report 13990659 (Version 2)
Quarter: 2017Q4

REPORT INFORMATION
  Report Type: Report from Study
  Country: JP (occurrence: JP)
  Receive Date: 20170920
  Receipt Date: 20171102
  Transmission Date: 20180321
  Serious: Yes (Hospitalization)
  Sender: FDA-Public Use
  Company Number: JP-ROCHE-1993495

PATIENT
  Age: 65 Year
  Sex: Male
  Weight: 71 kg

DRUGS (60)
  1. RITUXIMAB. [Suspect]
     Active Substance: RITUXIMAB
     Indication: RENAL TRANSPLANT
     Route: 041
     Dates: start: 20170215, end: 20170215
  2. METHYLPREDNISOLONE. [Suspect]
     Active Substance: METHYLPREDNISOLONE
     Route: 048
     Dates: start: 20170310, end: 20170316
  3. METHYLPREDNISOLONE. [Suspect]
     Active Substance: METHYLPREDNISOLONE
     Route: 048
     Dates: start: 20170623
  4. GUSPERIMUS HYDROCHLORIDE [Suspect]
     Active Substance: GUSPERIMUS TRIHYDROCHLORIDE
     Indication: RENAL TRANSPLANT
     Route: 042
     Dates: start: 20170304, end: 20170310
  5. BASILIXIMAB [Concomitant]
     Active Substance: BASILIXIMAB
     Indication: RENAL TRANSPLANT
     Route: 042
     Dates: start: 20170223, end: 20170223
  6. MIRCERA [Concomitant]
     Active Substance: METHOXY POLYETHYLENE GLYCOL-EPOETIN BETA
     Route: 058
     Dates: start: 20170612, end: 20170612
  7. SOL-MELCORT [Concomitant]
     Active Substance: METHYLPREDNISOLONE SODIUM SUCCINATE
     Route: 041
     Dates: start: 20170224, end: 20170302
  8. SOL-MELCORT [Concomitant]
     Active Substance: METHYLPREDNISOLONE SODIUM SUCCINATE
     Route: 041
     Dates: start: 20170304, end: 20170306
  9. TENELIA [Concomitant]
     Active Substance: TENELIGLIPTIN
     Indication: TYPE 2 DIABETES MELLITUS
     Route: 048
     Dates: start: 20170222
  10. NESP [Concomitant]
     Active Substance: DARBEPOETIN ALFA
     Indication: ANAEMIA
     Route: 058
     Dates: start: 20170111, end: 20170111
  11. MIRCERA [Concomitant]
     Active Substance: METHOXY POLYETHYLENE GLYCOL-EPOETIN BETA
     Route: 058
     Dates: start: 20170719, end: 20170719
  12. MAGNESIUM OXIDE. [Concomitant]
     Active Substance: MAGNESIUM OXIDE
     Indication: CONSTIPATION
     Route: 048
     Dates: start: 20170331
  13. AMLODIPINE BESILATE [Concomitant]
     Active Substance: AMLODIPINE BESYLATE
     Indication: HYPERTENSION
     Route: 048
     Dates: start: 20170227, end: 20170227
  14. CICLOSPORIN [Concomitant]
     Active Substance: CYCLOSPORINE
     Route: 048
     Dates: start: 20170517, end: 20170607
  15. BASILIXIMAB [Concomitant]
     Active Substance: BASILIXIMAB
     Route: 042
     Dates: start: 20170227, end: 20170227
  16. KREMEZIN [Concomitant]
     Active Substance: ACTIVATED CHARCOAL
     Route: 048
     Dates: start: 20170208
  17. SODIUM BICARBONATE. [Concomitant]
     Active Substance: SODIUM BICARBONATE
     Route: 048
     Dates: start: 20170222
  18. MIRCERA [Concomitant]
     Active Substance: METHOXY POLYETHYLENE GLYCOL-EPOETIN BETA
     Route: 058
     Dates: start: 20170802, end: 20170802
  19. DENOSINE (JAPAN) [Concomitant]
     Active Substance: GANCICLOVIR
     Indication: INFECTION PROPHYLAXIS
     Route: 042
     Dates: start: 20170304, end: 20170310
  20. NIFEDIPINE. [Concomitant]
     Active Substance: NIFEDIPINE
     Indication: HYPERTENSION
     Route: 048
     Dates: start: 20170317
  21. METHYLPREDNISOLONE. [Suspect]
     Active Substance: METHYLPREDNISOLONE
     Route: 048
     Dates: start: 20170303, end: 20170309
  22. TACROLIMUS HYDRATE [Concomitant]
     Active Substance: TACROLIMUS
     Indication: RENAL TRANSPLANT
     Route: 048
     Dates: start: 20170220, end: 20170304
  23. CICLOSPORIN [Concomitant]
     Active Substance: CYCLOSPORINE
     Route: 048
     Dates: start: 20170512, end: 20170512
  24. NESP [Concomitant]
     Active Substance: DARBEPOETIN ALFA
     Route: 058
     Dates: start: 20170201, end: 20170201
  25. MIRCERA [Concomitant]
     Active Substance: METHOXY POLYETHYLENE GLYCOL-EPOETIN BETA
     Indication: ANAEMIA
     Route: 058
     Dates: start: 20170331, end: 20170331
  26. LEVOFLOXACIN HEMIHYDRATE [Concomitant]
     Active Substance: LEVOFLOXACIN
     Route: 048
     Dates: start: 20170322, end: 20170323
  27. RITUXIMAB. [Suspect]
     Active Substance: RITUXIMAB
     Route: 041
     Dates: start: 20170222, end: 20170222
  28. MYCOPHENOLATE MOFETIL. [Suspect]
     Active Substance: MYCOPHENOLATE MOFETIL
     Indication: RENAL TRANSPLANT
     Route: 048
     Dates: start: 20170209, end: 20170226
  29. CICLOSPORIN [Concomitant]
     Active Substance: CYCLOSPORINE
     Indication: RENAL TRANSPLANT
     Route: 048
     Dates: start: 20170305, end: 20170310
  30. CICLOSPORIN [Concomitant]
     Active Substance: CYCLOSPORINE
     Route: 048
     Dates: start: 20170608, end: 20170609
  31. PITAVASTATIN CALCIUM [Concomitant]
     Active Substance: PITAVASTATIN CALCIUM
     Indication: DYSLIPIDAEMIA
     Route: 048
     Dates: start: 20170222
  32. NESP [Concomitant]
     Active Substance: DARBEPOETIN ALFA
     Route: 058
     Dates: start: 20170315, end: 20170315
  33. AMLODIPINE BESILATE [Concomitant]
     Active Substance: AMLODIPINE BESYLATE
     Route: 048
     Dates: start: 20170308, end: 20170317
  34. METHYLPREDNISOLONE. [Suspect]
     Active Substance: METHYLPREDNISOLONE
     Route: 048
     Dates: start: 20170317, end: 20170622
  35. LOXOPROFEN NA [Concomitant]
     Active Substance: LOXOPROFEN SODIUM
     Indication: PREMEDICATION
     Route: 048
     Dates: start: 20170215, end: 20170215
  36. LOXOPROFEN NA [Concomitant]
     Active Substance: LOXOPROFEN SODIUM
     Route: 048
     Dates: start: 20170222, end: 20170222
  37. CICLOSPORIN [Concomitant]
     Active Substance: CYCLOSPORINE
     Route: 048
     Dates: start: 20170311, end: 20170311
  38. CICLOSPORIN [Concomitant]
     Active Substance: CYCLOSPORINE
     Route: 048
     Dates: start: 20170321, end: 20170323
  39. CICLOSPORIN [Concomitant]
     Active Substance: CYCLOSPORINE
     Route: 048
     Dates: start: 20170331, end: 20170331
  40. CICLOSPORIN [Concomitant]
     Active Substance: CYCLOSPORINE
     Route: 048
     Dates: start: 20170223, end: 20170302
  41. SOL-MELCORT [Concomitant]
     Active Substance: METHYLPREDNISOLONE SODIUM SUCCINATE
     Indication: RENAL TRANSPLANT
     Route: 041
     Dates: start: 20170223, end: 20170223
  42. OLMETEC [Concomitant]
     Active Substance: OLMESARTAN MEDOXOMIL
     Indication: HYPERTENSION
     Route: 048
     Dates: start: 20170222
  43. MYCOPHENOLATE MOFETIL. [Suspect]
     Active Substance: MYCOPHENOLATE MOFETIL
     Route: 048
     Dates: start: 20170227, end: 20170313
  44. METHYLPREDNISOLONE. [Suspect]
     Active Substance: METHYLPREDNISOLONE
     Indication: RENAL TRANSPLANT
     Route: 048
     Dates: start: 20170209, end: 20170209
  45. CICLOSPORIN [Concomitant]
     Active Substance: CYCLOSPORINE
     Route: 048
     Dates: start: 20170313, end: 20170318
  46. CICLOSPORIN [Concomitant]
     Active Substance: CYCLOSPORINE
     Route: 048
     Dates: start: 20170413, end: 20170413
  47. CICLOSPORIN [Concomitant]
     Active Substance: CYCLOSPORINE
     Route: 048
     Dates: start: 20170610
  48. LANTUS [Concomitant]
     Active Substance: INSULIN GLARGINE
     Indication: TYPE 2 DIABETES MELLITUS
     Route: 065
     Dates: start: 20170313
  49. DILTIAZEM HYDROCHLORIDE. [Concomitant]
     Active Substance: DILTIAZEM HYDROCHLORIDE
     Indication: DRUG INTERACTION
     Route: 048
     Dates: start: 20170302, end: 20170606
  50. NOVOLIN R [Concomitant]
     Active Substance: INSULIN HUMAN
     Indication: TYPE 2 DIABETES MELLITUS
     Route: 065
     Dates: start: 20170313
  51. MYCOPHENOLATE MOFETIL. [Suspect]
     Active Substance: MYCOPHENOLATE MOFETIL
     Route: 048
     Dates: start: 20170314
  52. VALGANCICLOVIR HYDROCHLORIDE. [Suspect]
     Active Substance: VALGANCICLOVIR HYDROCHLORIDE
     Indication: RENAL TRANSPLANT
     Route: 048
     Dates: start: 20170312, end: 20170721
  53. SULFAMETHOXAZOLE/TRIMETHOPRIM [Suspect]
     Active Substance: SULFAMETHOXAZOLE\TRIMETHOPRIM
     Indication: RENAL TRANSPLANT
     Route: 048
     Dates: start: 20170316, end: 20170719
  54. DEXCHLORPHENIRAMINE MALEATE. [Concomitant]
     Active Substance: DEXCHLORPHENIRAMINE MALEATE
     Indication: PREMEDICATION
     Route: 048
     Dates: start: 20170215, end: 20170215
  55. DEXCHLORPHENIRAMINE MALEATE. [Concomitant]
     Active Substance: DEXCHLORPHENIRAMINE MALEATE
     Route: 048
     Dates: start: 20170222, end: 20170222
  56. CILNIDIPINE [Concomitant]
     Active Substance: CILNIDIPINE
     Indication: HYPERTENSION
     Route: 048
  57. NESP [Concomitant]
     Active Substance: DARBEPOETIN ALFA
     Route: 058
     Dates: start: 20170222, end: 20170222
  58. LEVOFLOXACIN HEMIHYDRATE [Concomitant]
     Active Substance: LEVOFLOXACIN
     Indication: INFECTION PROPHYLAXIS
     Route: 048
     Dates: start: 20170321, end: 20170321
  59. BISOPROLOL FUMARATE. [Concomitant]
     Active Substance: BISOPROLOL FUMARATE
     Indication: ARRHYTHMIA
     Route: 048
     Dates: start: 20170222
  60. AMLODIPINE BESILATE [Concomitant]
     Active Substance: AMLODIPINE BESYLATE
     Route: 048
     Dates: start: 20170228, end: 20170307

REACTIONS (3)
  - Deep vein thrombosis [Unknown]
  - Hydronephrosis [Recovered/Resolved]
  - Neutropenia [Recovered/Resolved]

NARRATIVE: CASE EVENT DATE: 20170512
